FAERS Safety Report 9423137 (Version 2)
Quarter: 2014Q3

REPORT INFORMATION
  Report Type: Spontaneous
  Country: US (occurrence: US)
  Receive Date: 20130726
  Receipt Date: 20140812
  Transmission Date: 20150326
  Serious: Yes (Other)
  Sender: FDA-Public Use
  Company Number: US-BRISTOL-MYERS SQUIBB COMPANY-19137538

PATIENT
  Age: 72 Year
  Sex: Female
  Weight: 111.13 kg

DRUGS (12)
  1. ASPIRIN. [Concomitant]
     Active Substance: ASPIRIN
  2. METFORMIN HCL [Concomitant]
     Active Substance: METFORMIN HYDROCHLORIDE
  3. DIOVAN [Concomitant]
     Active Substance: VALSARTAN
  4. CREON [Concomitant]
     Active Substance: PANCRELIPASE AMYLASE\PANCRELIPASE LIPASE\PANCRELIPASE PROTEASE
  5. OMEPRAZOLE. [Concomitant]
     Active Substance: OMEPRAZOLE
  6. LEVOTHYROXINE [Concomitant]
     Active Substance: LEVOTHYROXINE
  7. BYETTA [Suspect]
     Active Substance: EXENATIDE
     Indication: DIABETES MELLITUS
     Route: 058
     Dates: start: 201005, end: 201101
  8. GLYBURIDE. [Concomitant]
     Active Substance: GLYBURIDE
  9. OXYCODONE [Concomitant]
     Active Substance: OXYCODONE
  10. SIMVASTATIN. [Concomitant]
     Active Substance: SIMVASTATIN
  11. COLACE [Concomitant]
     Active Substance: DOCUSATE SODIUM
  12. ATENOLOL. [Concomitant]
     Active Substance: ATENOLOL

REACTIONS (1)
  - Pancreatic neuroendocrine tumour metastatic [Unknown]

NARRATIVE: CASE EVENT DATE: 201012
